FAERS Safety Report 6985200-9 (Version None)
Quarter: 2010Q3

REPORT INFORMATION
  Report Type: 
  Country: None (occurrence: None)
  Receive Date: 20100915
  Receipt Date: 20100906
  Transmission Date: 20110219
  Serious: Yes (Hospitalization)
  Sender: FDA-Public Use
  Company Number: BR-ROCHE-726087

PATIENT
  Sex: Female

DRUGS (1)
  1. INTERFERON ALFA [Suspect]
     Route: 065

REACTIONS (2)
  - HEART INJURY [None]
  - WEIGHT DECREASED [None]
